FAERS Safety Report 4704044-1 (Version None)
Quarter: 2005Q2

REPORT INFORMATION
  Report Type: 
  Country: None (occurrence: None)
  Receive Date: 20050630
  Receipt Date: 20050620
  Transmission Date: 20051028
  Serious: Yes (Other)
  Sender: FDA-Public Use
  Company Number: US-ROCHE-408402

PATIENT
  Age: 37 Year
  Sex: Female

DRUGS (5)
  1. PEG-INTERFERON ALFA 2A (RO 25-8310) [Suspect]
     Route: 058
     Dates: start: 20050216
  2. RIBAVIRIN [Suspect]
     Route: 048
     Dates: start: 20050216
  3. TRAZODONE [Concomitant]
     Indication: INSOMNIA
     Dosage: TAKEN AT BEDTIME.
     Route: 048
     Dates: start: 20050216
  4. ACETAMINOPHEN [Concomitant]
     Indication: PREMEDICATION
     Dosage: TAKEN AS NEEDED.
     Route: 048
     Dates: start: 20050216
  5. ACTIVATED DIMETHICONE [Concomitant]
     Dosage: TAKEN AS NEEDED.
     Dates: start: 20050311

REACTIONS (2)
  - GROIN PAIN [None]
  - LYMPHADENITIS [None]
